FAERS Safety Report 6235402-4 (Version None)
Quarter: 2009Q2

REPORT INFORMATION
  Report Type: 
  Country: None (occurrence: None)
  Receive Date: 20090618
  Receipt Date: 20090218
  Transmission Date: 20091009
  Serious: No
  Sender: FDA-Public Use
  Company Number: US-ASTRAZENECA-2009UW04667

PATIENT
  Sex: Female

DRUGS (1)
  1. ENTOCORT EC [Suspect]
     Indication: CROHN'S DISEASE
     Route: 048

REACTIONS (4)
  - HEPATIC STEATOSIS [None]
  - PAIN [None]
  - POST HERPETIC NEURALGIA [None]
  - WEIGHT INCREASED [None]
